FAERS Safety Report 6173174-2 (Version None)
Quarter: 2009Q2

REPORT INFORMATION
  Report Type: 
  Country: None (occurrence: None)
  Receive Date: 20090430
  Receipt Date: 20090421
  Transmission Date: 20091009
  Serious: Yes (Life-Threatening, Hospitalization, Other)
  Sender: FDA-Public Use
  Company Number: GB-PFIZER INC-2009201070

PATIENT

DRUGS (8)
  1. AZITHROMYCIN [Suspect]
     Dosage: 500 MG, 2X
     Route: 048
     Dates: start: 20090323, end: 20090323
  2. ADCAL-D3 [Concomitant]
     Dosage: 1 DF, 2X/DAY
  3. FLUCONAZOLE [Concomitant]
     Dosage: UNK
     Dates: start: 20090201
  4. FLUTICASONE PROPIONATE [Concomitant]
     Indication: ASTHMA
     Dosage: 2 DF, 2X/DAY
     Route: 055
     Dates: start: 20080218
  5. FUCIDIN H [Concomitant]
     Indication: IMPETIGO
     Dosage: 1 DF, 2X/DAY
     Route: 061
     Dates: start: 20080306
  6. LEVOTHYROXINE [Concomitant]
     Indication: HYPOTHYROIDISM
     Dosage: 125 UG, UNK
     Route: 048
  7. NITROFURANTOIN [Concomitant]
  8. SALBUTAMOL [Concomitant]
     Indication: ASTHMA
     Dosage: 2 DF, 1X/DAY
     Route: 055

REACTIONS (5)
  - ABDOMINAL PAIN UPPER [None]
  - BLOOD AMYLASE INCREASED [None]
  - DYSPNOEA [None]
  - FACIAL PARESIS [None]
  - PANCREATITIS [None]
